FAERS Safety Report 14405801 (Version 1)
Quarter: 2018Q1

REPORT INFORMATION
  Report Type: Spontaneous
  Country: US (occurrence: US)
  Receive Date: 20180118
  Receipt Date: 20180118
  Transmission Date: 20180509
  Serious: Yes (Hospitalization)
  Sender: FDA-Public Use
  Company Number: US-B. BRAUN MEDICAL INC.-2040288

PATIENT
  Age: 43 Year
  Sex: Female
  Weight: 73.6 kg

DRUGS (2)
  1. CEFAZOLIN SODIUM. [Suspect]
     Active Substance: CEFAZOLIN SODIUM
     Route: 042
  2. 5% DEXTROSE IN WATER FOR INJECTION [Concomitant]
     Route: 042

REACTIONS (6)
  - Hypotension [Recovered/Resolved]
  - Erythema [Recovered/Resolved]
  - Hyperhidrosis [Recovered/Resolved]
  - Angioedema [Recovered/Resolved]
  - Tachycardia [Recovered/Resolved]
  - Anaphylactic shock [Recovered/Resolved]
